FAERS Safety Report 9405600 (Version 1)
Quarter: 2013Q3

REPORT INFORMATION
  Report Type: Spontaneous
  Country: US (occurrence: US)
  Receive Date: 20130717
  Receipt Date: 20130717
  Transmission Date: 20140515
  Serious: No
  Sender: FDA-Public Use
  Company Number: US-BAUSCH-2012BL004090

PATIENT
  Age: 16 Year
  Sex: Male

DRUGS (1)
  1. BESIVANCE (BESIFLOXACIN OPHTHALMIC SUSPENSION) 0.6% [Suspect]
     Indication: CONJUNCTIVITIS
     Dosage: 1 DROP TO LEFT EYE EVERY 3 HOURS
     Route: 047
     Dates: start: 20120626

REACTIONS (2)
  - Eye pain [Not Recovered/Not Resolved]
  - Lacrimation increased [Not Recovered/Not Resolved]
